FAERS Safety Report 5560350-2 (Version None)
Quarter: 2007Q4

REPORT INFORMATION
  Report Type: 
  Country: None (occurrence: None)
  Receive Date: 20071214
  Receipt Date: 20071104
  Transmission Date: 20080405
  Serious: No
  Sender: FDA-Public Use
  Company Number: US-ABBOTT-07P-163-0423508-00

PATIENT
  Sex: Male

DRUGS (7)
  1. HUMIRA [Suspect]
     Indication: PSORIATIC ARTHROPATHY
     Route: 058
     Dates: start: 20071102
  2. METHOTREXATE [Concomitant]
     Indication: PSORIATIC ARTHROPATHY
     Route: 048
  3. STEROIDS [Concomitant]
     Indication: DRUG USE FOR UNKNOWN INDICATION
  4. MEDICATION FOR SLEEPING [Concomitant]
     Indication: DRUG USE FOR UNKNOWN INDICATION
  5. ANTIDEPRESSANTS [Concomitant]
     Indication: DRUG USE FOR UNKNOWN INDICATION
  6. ANXIETY MEDICATION [Concomitant]
     Indication: DRUG USE FOR UNKNOWN INDICATION
  7. ANTIKAROTOTIC SUBSTANCE [Concomitant]
     Indication: NAIL PSORIASIS

REACTIONS (5)
  - ANOREXIA [None]
  - INJECTION SITE PAIN [None]
  - LETHARGY [None]
  - NAUSEA [None]
  - SOMNOLENCE [None]
